FAERS Safety Report 22208856 (Version 1)
Quarter: 2023Q2

REPORT INFORMATION
  Report Type: Spontaneous
  Country: US (occurrence: US)
  Receive Date: 20230413
  Receipt Date: 20230413
  Transmission Date: 20230721
  Serious: No
  Sender: FDA-Public Use
  Company Number: US-BRISTOL-MYERS SQUIBB COMPANY-2023-053047

PATIENT
  Age: 73 Year
  Sex: Female

DRUGS (2)
  1. ABRAXANE [Suspect]
     Active Substance: PACLITAXEL
     Indication: Breast cancer
     Dosage: FREQUENCY: DAY 1,8, 15 EVERY 28 DAYS CYCLE
  2. ABRAXANE [Suspect]
     Active Substance: PACLITAXEL

REACTIONS (2)
  - Weight decreased [Unknown]
  - Off label use [Unknown]
